FAERS Safety Report 5907968-2 (Version None)
Quarter: 2008Q4

REPORT INFORMATION
  Report Type: 
  Country: None (occurrence: None)
  Receive Date: 20081003
  Receipt Date: 20080924
  Transmission Date: 20090506
  Serious: Yes (Other)
  Sender: FDA-Public Use
  Company Number: FR-PFIZER INC-2008072173

PATIENT
  Sex: Female
  Weight: 55 kg

DRUGS (2)
  1. CHANTIX [Suspect]
     Indication: SMOKING CESSATION THERAPY
     Route: 048
     Dates: start: 20080809, end: 20080819
  2. CONTRACEPTIVE, UNSPECIFIED [Concomitant]

REACTIONS (4)
  - AGGRESSION [None]
  - HOMICIDAL IDEATION [None]
  - POOR QUALITY SLEEP [None]
  - SLEEP TALKING [None]
